FAERS Safety Report 13602346 (Version 4)
Quarter: 2018Q2

REPORT INFORMATION
  Report Type: Report from Study
  Country: US (occurrence: US)
  Receive Date: 20170601
  Receipt Date: 20180604
  Transmission Date: 20180711
  Serious: Yes (Other)
  Sender: FDA-Public Use
  Company Number: US-SA-2017SA096905

PATIENT
  Age: 23 Year
  Sex: Female

DRUGS (3)
  1. CEFALEXIN [Suspect]
     Active Substance: CEPHALEXIN
     Dosage: UNK UNK,UNK
     Route: 065
     Dates: start: 2017, end: 2017
  2. TERIFLUNOMIDE [Suspect]
     Active Substance: TERIFLUNOMIDE
     Dosage: UNK
  3. LEMTRADA [Suspect]
     Active Substance: ALEMTUZUMAB
     Indication: MULTIPLE SCLEROSIS
     Dosage: 12 MG, QD
     Route: 041
     Dates: start: 20170522, end: 20170526

REACTIONS (29)
  - Hypoaesthesia [Recovered/Resolved]
  - Pallor [Unknown]
  - Menstruation irregular [Not Recovered/Not Resolved]
  - Gait disturbance [Recovered/Resolved]
  - Dyspnoea exertional [Unknown]
  - Hypoaesthesia [Unknown]
  - Diarrhoea [Unknown]
  - Abdominal pain upper [Not Recovered/Not Resolved]
  - Eye pain [Recovered/Resolved]
  - Multiple sclerosis relapse [Recovered/Resolved]
  - Headache [Not Recovered/Not Resolved]
  - Platelet count abnormal [Recovered/Resolved]
  - Somnolence [Not Recovered/Not Resolved]
  - Migraine [Recovered/Resolved]
  - Menorrhagia [Recovered/Resolved]
  - Bone pain [Unknown]
  - Erythema [Recovered/Resolved]
  - Rectal haemorrhage [Not Recovered/Not Resolved]
  - Skin discolouration [Not Recovered/Not Resolved]
  - Palpitations [Unknown]
  - Pain [Not Recovered/Not Resolved]
  - Fatigue [Not Recovered/Not Resolved]
  - Ingrown hair [Not Recovered/Not Resolved]
  - Asthenia [Not Recovered/Not Resolved]
  - Pelvic pain [Not Recovered/Not Resolved]
  - Spinal pain [Not Recovered/Not Resolved]
  - Epistaxis [Unknown]
  - Rhinitis [Recovering/Resolving]
  - Hair disorder [Not Recovered/Not Resolved]

NARRATIVE: CASE EVENT DATE: 2017
